FAERS Safety Report 22530132 (Version 1)
Quarter: 2023Q2

REPORT INFORMATION
  Report Type: Spontaneous
  Country: US (occurrence: US)
  Receive Date: 20230607
  Receipt Date: 20230607
  Transmission Date: 20230721
  Serious: No
  Sender: FDA-Public Use
  Company Number: US-FreseniusKabi-FK202307801

PATIENT
  Age: 40 Year
  Sex: Female
  Weight: 82.6 kg

DRUGS (2)
  1. CEFOTETAN [Suspect]
     Active Substance: CEFOTETAN DISODIUM
     Indication: Prophylaxis
     Route: 042
     Dates: start: 20230529, end: 20230529
  2. CEFOTETAN [Suspect]
     Active Substance: CEFOTETAN DISODIUM
     Dosage: ONCE, TOTAL DOSE OF 2G?ROUTE OF ADMIN. IV
     Dates: start: 20230529, end: 20230529

REACTIONS (1)
  - Urticaria [Recovered/Resolved]

NARRATIVE: CASE EVENT DATE: 20230529
